FAERS Safety Report 5676883-4 (Version None)
Quarter: 2008Q1

REPORT INFORMATION
  Report Type: 
  Country: None (occurrence: None)
  Receive Date: 20080324
  Receipt Date: 20080313
  Transmission Date: 20080703
  Serious: Yes (Hospitalization)
  Sender: FDA-Public Use
  Company Number: JP-MERCK-0803USA03133

PATIENT
  Age: 75 Year

DRUGS (4)
  1. HYZAAR [Suspect]
     Indication: HYPERTENSION
     Route: 048
  2. CALBLOCK [Concomitant]
     Indication: HYPERTENSION
     Route: 048
  3. ASPIRIN [Concomitant]
     Route: 048
  4. NU-LOTAN [Concomitant]
     Route: 048

REACTIONS (3)
  - CEREBRAL HAEMORRHAGE TRAUMATIC [None]
  - HYPOTENSION [None]
  - LOSS OF CONSCIOUSNESS [None]
